FAERS Safety Report 23785836 (Version 4)
Quarter: 2024Q3

REPORT INFORMATION
  Report Type: Report from Study
  Country: IL (occurrence: IL)
  Receive Date: 20240425
  Receipt Date: 20240909
  Transmission Date: 20241017
  Serious: No
  Sender: JOHNSON AND JOHNSON
  Company Number: IL-JNJFOC-20240412392

PATIENT
  Age: 28 Year
  Sex: Female

DRUGS (1)
  1. SIMPONI [Suspect]
     Active Substance: GOLIMUMAB
     Indication: Rheumatoid arthritis
     Route: 058
     Dates: start: 20230315

REACTIONS (2)
  - Product dose omission issue [Unknown]
  - Device issue [Unknown]
